FAERS Safety Report 12924590 (Version 1)
Quarter: 2016Q4

REPORT INFORMATION
  Report Type: Spontaneous
  Country: US (occurrence: US)
  Receive Date: 20161108
  Receipt Date: 20161108
  Transmission Date: 20170207
  Serious: Yes (Hospitalization)
  Sender: FDA-Public Use
  Company Number: None

PATIENT
  Age: 46 Year
  Sex: Female
  Weight: 90.5 kg

DRUGS (12)
  1. PROCHLORPERAZINE. [Concomitant]
     Active Substance: PROCHLORPERAZINE
  2. NORVASC [Concomitant]
     Active Substance: AMLODIPINE BESYLATE
  3. IBUPROFEN. [Concomitant]
     Active Substance: IBUPROFEN
  4. OMEPRAZOLE. [Concomitant]
     Active Substance: OMEPRAZOLE
  5. SERTRALINE [Concomitant]
     Active Substance: SERTRALINE HYDROCHLORIDE
  6. DEXAMETHASONE. [Concomitant]
     Active Substance: DEXAMETHASONE
  7. OPDIVO [Suspect]
     Active Substance: NIVOLUMAB
     Indication: GLIOBLASTOMA MULTIFORME
     Dosage: ?          OTHER FREQUENCY:EVERY 2 WEEKS;?
     Route: 042
     Dates: start: 20161005
  8. LEVETIRACETAM. [Concomitant]
     Active Substance: LEVETIRACETAM
  9. HYDROCHLOROTHIAZIDE. [Concomitant]
     Active Substance: HYDROCHLOROTHIAZIDE
  10. ZOLPIDEM (AMBIEN CR) [Concomitant]
  11. HYDROMORPHONE (DILAUDID) [Concomitant]
  12. PROMETHAZINE [Concomitant]
     Active Substance: PROMETHAZINE\PROMETHAZINE HYDROCHLORIDE

REACTIONS (4)
  - Heart rate increased [None]
  - Headache [None]
  - Vomiting [None]
  - Blood pressure increased [None]

NARRATIVE: CASE EVENT DATE: 20161019
